FAERS Safety Report 12452317 (Version 1)
Quarter: 2016Q2

REPORT INFORMATION
  Report Type: Spontaneous
  Country: US (occurrence: US)
  Receive Date: 20160609
  Receipt Date: 20160609
  Transmission Date: 20160815
  Serious: No
  Sender: FDA-Public Use
  Company Number: US-ASTELLAS-2015US033250

PATIENT
  Sex: Female

DRUGS (1)
  1. PROGRAF [Suspect]
     Active Substance: TACROLIMUS\TACROLIMUS ANHYDROUS
     Indication: RENAL TRANSPLANT
     Dosage: 3 MG, TWICE DAILY (03X1 MG TABLETS IN MORNING AND 03X1 MG TABLETS IN EVENING)
     Route: 048
     Dates: start: 20100218

REACTIONS (3)
  - Pruritus [Unknown]
  - Skin disorder [Unknown]
  - Blood test abnormal [Unknown]
